FAERS Safety Report 7058632-0 (Version None)
Quarter: 2010Q4

REPORT INFORMATION
  Report Type: 
  Country: None (occurrence: None)
  Receive Date: 20101022
  Receipt Date: 20101018
  Transmission Date: 20110411
  Serious: Yes (Life-Threatening, Hospitalization)
  Sender: FDA-Public Use
  Company Number: B0680215A

PATIENT
  Sex: Male

DRUGS (3)
  1. MELPHALAN HYDROCHLORIDE [Suspect]
     Indication: MULTIPLE MYELOMA
     Dosage: 4MG PER DAY
     Route: 065
     Dates: start: 20091104
  2. THALIDOMIDE [Suspect]
     Indication: MULTIPLE MYELOMA
     Dosage: 200MG PER DAY
     Route: 048
     Dates: start: 20091104
  3. PREDNISONE [Suspect]
     Indication: MULTIPLE MYELOMA
     Dosage: 135MG PER DAY
     Route: 065
     Dates: start: 20091104

REACTIONS (9)
  - BONE PAIN [None]
  - DYSPNOEA [None]
  - EXTRAVASATION [None]
  - HYPOCAPNIA [None]
  - HYPOXIA [None]
  - LUNG DISORDER [None]
  - LYMPHOPENIA [None]
  - PLEURAL EFFUSION [None]
  - THROMBOCYTOPENIA [None]
